FAERS Safety Report 7928243-0 (Version None)
Quarter: 2011Q4

REPORT INFORMATION
  Report Type: 
  Country: None (occurrence: None)
  Receive Date: 20111118
  Receipt Date: 20111104
  Transmission Date: 20120403
  Serious: Yes (Hospitalization)
  Sender: FDA-Public Use
  Company Number: GB-BAYER-2011-107732

PATIENT
  Age: 37 Year
  Sex: Female

DRUGS (1)
  1. GADOVIST 1.0 MMOL/ML SOLUTION FOR INJECTION [Suspect]
     Indication: NUCLEAR MAGNETIC RESONANCE IMAGING
     Dosage: 14 ML, ONCE
     Route: 003

REACTIONS (4)
  - ERYTHEMA [None]
  - NUCLEAR MAGNETIC RESONANCE IMAGING [None]
  - CHEST DISCOMFORT [None]
  - RASH MACULAR [None]
